FAERS Safety Report 5801937-9 (Version None)
Quarter: 2008Q3

REPORT INFORMATION
  Report Type: 
  Country: None (occurrence: None)
  Receive Date: 20080702
  Receipt Date: 20080619
  Transmission Date: 20090109
  Serious: Yes (Other)
  Sender: FDA-Public Use
  Company Number: 8033765

PATIENT
  Age: 23 Year
  Sex: Female

DRUGS (4)
  1. KEPPRA [Suspect]
     Indication: EPILEPSY
     Dosage: 1000 MG PO
     Route: 048
     Dates: start: 20040101
  2. HUMALOG [Concomitant]
  3. PRENATAL VITAMINS /01549301/ [Concomitant]
  4. FOLIC ACID [Concomitant]

REACTIONS (3)
  - ALPHA 1 FOETOPROTEIN INCREASED [None]
  - DRUG EXPOSURE DURING PREGNANCY [None]
  - PREGNANCY [None]
